FAERS Safety Report 14671136 (Version 1)
Quarter: 2018Q1

REPORT INFORMATION
  Report Type: Spontaneous
  Country: US (occurrence: US)
  Receive Date: 20180322
  Receipt Date: 20180322
  Transmission Date: 20180509
  Serious: No
  Sender: FDA-Public Use
  Company Number: None

PATIENT
  Age: 60 Year
  Sex: Male

DRUGS (1)
  1. XALKORI [Suspect]
     Active Substance: CRIZOTINIB

REACTIONS (10)
  - Neoplasm [None]
  - Vomiting [None]
  - Heart rate irregular [None]
  - Hypersensitivity [None]
  - Deep vein thrombosis [None]
  - Fatigue [None]
  - Rash [None]
  - Pulmonary embolism [None]
  - Weight decreased [None]
  - Intestinal polyp [None]

NARRATIVE: CASE EVENT DATE: 20180321
